FAERS Safety Report 9376857 (Version 1)
Quarter: 2013Q3

REPORT INFORMATION
  Report Type: Report from Study
  Country: PE (occurrence: PE)
  Receive Date: 20130701
  Receipt Date: 20130701
  Transmission Date: 20140515
  Serious: Yes (Hospitalization, Other)
  Sender: FDA-Public Use
  Company Number: PE-009507513-0912USA02575

PATIENT
  Age: 63 Year
  Sex: Female
  Weight: 69 kg

DRUGS (22)
  1. BLINDED EZETIMIBE (+) SIMVASTATIN [Suspect]
     Indication: ACUTE CORONARY SYNDROME
     Route: 048
     Dates: start: 20091113
  2. BLINDED PLACEBO [Suspect]
     Indication: ACUTE CORONARY SYNDROME
     Route: 048
     Dates: start: 20091113
  3. BLINDED POST TRIAL THERAPY [Suspect]
     Indication: ACUTE CORONARY SYNDROME
     Route: 048
     Dates: start: 20091113
  4. BLINDED PRE TRIAL THERAPY [Suspect]
     Indication: ACUTE CORONARY SYNDROME
     Route: 048
     Dates: start: 20091113
  5. BLINDED SIMVASTATIN [Suspect]
     Indication: ACUTE CORONARY SYNDROME
     Route: 048
     Dates: start: 20091113
  6. BLINDED THERAPY [Suspect]
     Indication: ACUTE CORONARY SYNDROME
     Route: 048
     Dates: start: 20091113
  7. FUROSEMIDE [Suspect]
     Dosage: 20 MG, QD
     Route: 048
     Dates: start: 20091202, end: 20091209
  8. INSULIN LISPRO [Suspect]
     Dosage: 2 UI MOVIL SCALE
     Route: 058
     Dates: start: 20091202, end: 20091203
  9. INSULIN LISPRO [Suspect]
     Dosage: 2 UI MOVIL SCALE
     Route: 058
     Dates: start: 20091207, end: 20091210
  10. NITROGLYCERIN [Suspect]
     Dosage: 10 MG, TID
     Route: 048
     Dates: start: 20091207, end: 20091210
  11. ACETAMINOPHEN [Suspect]
     Dosage: 1 G, TID
     Route: 048
     Dates: start: 20091204, end: 20091208
  12. PREDNISONE [Suspect]
     Dosage: 50 MG, QD
     Route: 048
     Dates: start: 20091206, end: 20091209
  13. CLONAZEPAM [Suspect]
     Dosage: 0.5 MG, BID
     Route: 048
     Dates: start: 20091208, end: 20091209
  14. CEFTRIAXONE SODIUM [Suspect]
     Dosage: 2 G, QD
     Route: 042
     Dates: start: 20091202, end: 20091206
  15. FLUTICASONE PROPIONATE (+) SALMETEROL XINAFOATE [Suspect]
     Dosage: 250 MG 2 PUFF BID
     Route: 055
     Dates: start: 20091202
  16. OMEPRAZOLE [Concomitant]
     Dosage: 20 MG, QD
     Route: 042
     Dates: start: 20091201
  17. ASPIRIN [Concomitant]
     Dosage: 100 MG, QD
     Route: 048
     Dates: start: 20091202
  18. IPRATROPIUM BROMIDE [Concomitant]
     Dosage: 2 PUFF, BID
     Route: 055
     Dates: start: 20091207
  19. IPRATROPIUM BROMIDE [Concomitant]
     Dosage: 2 PUFF E.C/6 HOURS
     Route: 055
     Dates: start: 20091202
  20. ENALAPRIL MALEATE [Concomitant]
     Dosage: 10 MG, BID
     Route: 048
     Dates: start: 20091203
  21. SALMETEROL [Concomitant]
     Dosage: 2 PUFF, BID
     Route: 055
     Dates: start: 20091207
  22. FLUTICASONE [Concomitant]
     Dosage: 2 PUFF, BID
     Route: 055
     Dates: start: 20091207

REACTIONS (2)
  - Lower gastrointestinal haemorrhage [Recovered/Resolved]
  - Pleural effusion [Recovered/Resolved]
